FAERS Safety Report 13940153 (Version 2)
Quarter: 2017Q4

REPORT INFORMATION
  Report Type: Spontaneous
  Country: US (occurrence: FR)
  Receive Date: 20170906
  Receipt Date: 20171019
  Transmission Date: 20180320
  Serious: Yes (Other)
  Sender: FDA-Public Use
  Company Number: US-SUNOVION-2017SUN003924

PATIENT

DRUGS (4)
  1. INDACATEROL AND GLYCOPYRROLATE [Suspect]
     Active Substance: GLYCOPYRROLATE\INDACATEROL MALEATE
     Indication: CHRONIC OBSTRUCTIVE PULMONARY DISEASE
     Dosage: 1 DF (85/43 UG), QD
     Route: 055
     Dates: start: 20170617, end: 20170715
  2. SERESTA [Concomitant]
     Active Substance: OXAZEPAM
     Dosage: UNK
     Dates: start: 20140130
  3. STRESAM [Concomitant]
     Active Substance: ETIFOXINE
     Dosage: UNK
     Dates: start: 20140130
  4. BRICANYL [Concomitant]
     Active Substance: TERBUTALINE SULFATE
     Dosage: UNK
     Dates: start: 20140130

REACTIONS (2)
  - Generalised erythema [Unknown]
  - Photosensitivity reaction [Recovered/Resolved]

NARRATIVE: CASE EVENT DATE: 20170620
